FAERS Safety Report 5226592-0 (Version None)
Quarter: 2007Q1

REPORT INFORMATION
  Report Type: 
  Country: None (occurrence: None)
  Receive Date: 20070201
  Receipt Date: 20070110
  Transmission Date: 20070707
  Serious: Yes (Hospitalization)
  Sender: FDA-Public Use
  Company Number: JP-BOEHRINGER INGELHEIM PHARMACEUTICALS, INC.-2006-BP-14226NB

PATIENT
  Sex: Male
  Weight: 66 kg

DRUGS (5)
  1. MEXITIL [Suspect]
     Indication: NEURALGIA
     Route: 048
     Dates: start: 20060227, end: 20060306
  2. TEGRETOL [Suspect]
     Indication: NEURALGIA
     Route: 048
     Dates: start: 20060130, end: 20060306
  3. GOSHA-JINKI-GAN [Concomitant]
     Indication: NEURALGIA
     Route: 048
     Dates: start: 20051114, end: 20060306
  4. CYANOCOBALAMIN [Concomitant]
     Indication: NEURALGIA
     Route: 048
     Dates: start: 20060210, end: 20060306
  5. ANAFRANIL [Concomitant]
     Indication: NEURALGIA
     Route: 048
     Dates: start: 20060210, end: 20060306

REACTIONS (1)
  - DRUG HYPERSENSITIVITY [None]
